FAERS Safety Report 4509464-6 (Version None)
Quarter: 2004Q4

REPORT INFORMATION
  Report Type: 
  Country: None (occurrence: None)
  Receive Date: 20041119
  Receipt Date: 20041109
  Transmission Date: 20050328
  Serious: Yes (Death)
  Sender: FDA-Public Use
  Company Number: 002#4#2004-00270

PATIENT
  Sex: Male

DRUGS (1)
  1. REGLAN [Suspect]
     Dosage: 10 MG, 2 IN 1 D, ORAL
     Route: 048
     Dates: start: 20011101, end: 20020801

REACTIONS (1)
  - COMPLETED SUICIDE [None]
